FAERS Safety Report 7179602-8 (Version None)
Quarter: 2010Q4

REPORT INFORMATION
  Report Type: 
  Country: None (occurrence: None)
  Receive Date: 20101221
  Receipt Date: 20101213
  Transmission Date: 20110411
  Serious: Yes (Hospitalization, Disabling)
  Sender: FDA-Public Use
  Company Number: MX-SANOFI-AVENTIS-2010SA075395

PATIENT
  Age: 84 Year
  Sex: Female
  Weight: 48 kg

DRUGS (5)
  1. LANTUS [Suspect]
     Indication: TYPE 2 DIABETES MELLITUS
     Route: 058
     Dates: start: 20080101
  2. MULTI-VITAMINS [Concomitant]
     Route: 048
     Dates: start: 20090101
  3. SENNA [Concomitant]
     Indication: CONSTIPATION
     Route: 048
     Dates: start: 20090101
  4. ASPIRIN [Concomitant]
     Indication: THROMBOSIS PROPHYLAXIS
     Route: 048
     Dates: start: 20090101
  5. PENTOXIFYLLINE [Concomitant]
     Route: 048
     Dates: start: 20090101

REACTIONS (2)
  - DIABETIC FOOT [None]
  - LIMB DISCOMFORT [None]
